FAERS Safety Report 19730028 (Version 1)
Quarter: 2021Q3

REPORT INFORMATION
  Report Type: Spontaneous
  Country: DE (occurrence: DE)
  Receive Date: 20210820
  Receipt Date: 20210820
  Transmission Date: 20211014
  Serious: Yes (Hospitalization, Other)
  Sender: FDA-Public Use
  Company Number: DE-TEVA-2021-DE-1942934

PATIENT
  Age: 30 Year
  Sex: Female
  Weight: 60 kg

DRUGS (3)
  1. INSULIN (HUMAN)/INSULIN?ISOPHAN (HUMAN) [Concomitant]
     Active Substance: INSULIN HUMAN
     Dosage: SCHEME
  2. 3 [Concomitant]
     Dosage: 1000 IU (INTERNATIONAL UNIT) DAILY; 1?0?0?0
  3. DOXORUBICIN [Suspect]
     Active Substance: DOXORUBICIN
     Dosage: SCHEME
     Route: 065

REACTIONS (7)
  - Loss of consciousness [Unknown]
  - Chest discomfort [Unknown]
  - Syncope [Unknown]
  - Tachycardia [Unknown]
  - Vomiting [Unknown]
  - Memory impairment [Unknown]
  - Diabetes mellitus [Unknown]
